FAERS Safety Report 6800815-6 (Version None)
Quarter: 2010Q2

REPORT INFORMATION
  Report Type: 
  Country: None (occurrence: None)
  Receive Date: 20100629
  Receipt Date: 20100621
  Transmission Date: 20101027
  Serious: Yes (Death, Other)
  Sender: FDA-Public Use
  Company Number: JP-BAYER-201011089BYL

PATIENT
  Age: 70 Year
  Sex: Male
  Weight: 65 kg

DRUGS (19)
  1. NEXAVAR [Suspect]
     Indication: HEPATIC NEOPLASM MALIGNANT
     Dosage: TOTAL DAILY DOSE: 800 MG  UNIT DOSE: 200 MG
     Route: 048
     Dates: start: 20090818, end: 20091008
  2. NEXAVAR [Suspect]
     Dosage: UNIT DOSE: 200 MG
     Route: 048
     Dates: start: 20091022, end: 20091105
  3. NEXAVAR [Suspect]
     Dosage: TOTAL DAILY DOSE: 400 MG  UNIT DOSE: 200 MG
     Route: 048
     Dates: start: 20091112
  4. NEXAVAR [Suspect]
     Dosage: UNIT DOSE: 200 MG
     Route: 048
     Dates: start: 20100325, end: 20100519
  5. NEXAVAR [Suspect]
     Dosage: UNIT DOSE: 200 MG
     Route: 048
     Dates: start: 20090204, end: 20100324
  6. NEXAVAR [Suspect]
     Dosage: UNIT DOSE: 200 MG
     Route: 048
     Dates: start: 20091224, end: 20100203
  7. URSO 250 [Concomitant]
     Indication: CHOLELITHIASIS
     Dosage: SINCE BEFORE ADMINISTRATION
     Route: 048
  8. SUPACAL [Concomitant]
     Indication: CHOLELITHIASIS
     Dosage: SINCE BEFORE ADMINISTRATION
     Route: 048
  9. MYSLEE [Concomitant]
     Indication: INSOMNIA
     Dosage: SINCE BEFORE ADMINISTRATION
     Route: 048
     Dates: end: 20100516
  10. TAKEPRON [Concomitant]
     Indication: REFLUX OESOPHAGITIS
     Dosage: SINCE BEFORE ADMINISTRATION
     Route: 048
  11. KARY UNI [Concomitant]
     Dosage: SINCE BEFORE ADMINISTRATION
     Route: 031
  12. MUCOSOLVAN [Concomitant]
     Route: 048
     Dates: start: 20091022
  13. FERROMIA [Concomitant]
     Route: 048
     Dates: start: 20100311, end: 20100519
  14. EPADEL [Concomitant]
     Route: 048
     Dates: start: 20100311, end: 20100519
  15. OXYCONTIN [Concomitant]
     Route: 048
     Dates: start: 20100422, end: 20100510
  16. OXYCONTIN [Concomitant]
     Route: 048
     Dates: start: 20100511, end: 20100519
  17. LOXONIN [Concomitant]
     Route: 048
     Dates: start: 20100405, end: 20100519
  18. REBAMIPIDE [Concomitant]
     Route: 048
     Dates: start: 20100405, end: 20100519
  19. LENDORMIN [Concomitant]
     Indication: INSOMNIA
     Route: 048
     Dates: start: 20100517, end: 20100519

REACTIONS (12)
  - ANAEMIA [None]
  - DEAFNESS UNILATERAL [None]
  - DECREASED APPETITE [None]
  - DIARRHOEA [None]
  - FAECES HARD [None]
  - GASTRIC HAEMORRHAGE [None]
  - HEPATIC FUNCTION ABNORMAL [None]
  - HEPATIC NEOPLASM MALIGNANT [None]
  - HYPERAMYLASAEMIA [None]
  - HYPERTENSION [None]
  - PALMAR-PLANTAR ERYTHRODYSAESTHESIA SYNDROME [None]
  - PLATELET COUNT DECREASED [None]
